FAERS Safety Report 4827828-8 (Version None)
Quarter: 2005Q4

REPORT INFORMATION
  Report Type: 
  Country: None (occurrence: None)
  Receive Date: 20051114
  Receipt Date: 20051114
  Transmission Date: 20060501
  Serious: No
  Sender: FDA-Public Use
  Company Number: None

PATIENT
  Age: 86 Year
  Sex: Female
  Weight: 58.9676 kg

DRUGS (1)
  1. AMIODARONE [Suspect]
     Indication: ATRIAL FIBRILLATION
     Dates: start: 20050718, end: 20051018

REACTIONS (5)
  - DIZZINESS [None]
  - DYSPNOEA [None]
  - INSOMNIA [None]
  - LUNG DISORDER [None]
  - SCAR [None]
